FAERS Safety Report 11840503 (Version 1)
Quarter: 2015Q4

REPORT INFORMATION
  Report Type: Spontaneous
  Country: None (occurrence: US)
  Receive Date: 20151216
  Receipt Date: 20151216
  Transmission Date: 20160305
  Serious: Yes (Other)
  Sender: FDA-Public Use
  Company Number: US-IROKO PHARMACEUTICALS LLC-IND1-US-2009-0012

PATIENT
  Age: 34 Year
  Sex: Female
  Weight: 75 kg

DRUGS (7)
  1. ENBREL [Concomitant]
     Active Substance: ETANERCEPT
  2. LIDEX SOLUTION [Concomitant]
  3. VITAMIN D3 [Concomitant]
     Active Substance: CHOLECALCIFEROL
  4. INDOCIN [Suspect]
     Active Substance: INDOMETHACIN\INDOMETHACIN SODIUM
     Route: 048
     Dates: start: 20081218, end: 20081222
  5. DESOGESTREL [Concomitant]
     Active Substance: DESOGESTREL
  6. ETHINYLESTRADIOL [Concomitant]
     Active Substance: ETHINYL ESTRADIOL
  7. LIDEX 0.05% OINTMENT [Concomitant]

REACTIONS (1)
  - Headache [None]

NARRATIVE: CASE EVENT DATE: 20081216
